FAERS Safety Report 21371189 (Version 1)
Quarter: 2022Q3

REPORT INFORMATION
  Report Type: Report from Study
  Country: US (occurrence: US)
  Receive Date: 20220923
  Receipt Date: 20220923
  Transmission Date: 20221027
  Serious: Yes (Hospitalization, Other)
  Sender: FDA-Public Use
  Company Number: US-BRISTOL-MYERS SQUIBB COMPANY-2022-105559

PATIENT
  Age: 62 Year
  Sex: Female
  Weight: 72.3 kg

DRUGS (25)
  1. POMALIDOMIDE [Suspect]
     Active Substance: POMALIDOMIDE
     Indication: Plasma cell myeloma
     Dosage: DAILY 21 DAYS THEN 7 DAYS OFF ON HOLD DUE TO VIRAL URI
     Route: 048
     Dates: start: 20190225, end: 20210917
  2. DEXAMETHASONE [Suspect]
     Active Substance: DEXAMETHASONE
     Indication: Plasma cell myeloma
     Dosage: ONCE MONTHLY AFTER INFUSION
     Route: 048
     Dates: start: 20190225, end: 20210917
  3. DARZALEX [Suspect]
     Active Substance: DARATUMUMAB
     Indication: Product used for unknown indication
     Dosage: PI WANTS TO INDUCE A MORE RAPID
     Route: 042
     Dates: start: 20190107, end: 20190225
  4. DARZALEX [Suspect]
     Active Substance: DARATUMUMAB
     Dosage: WEEKLY PUT ON HOLD DUE TO VIRAL URI
     Route: 042
     Dates: start: 20190225, end: 20191216
  5. DARZALEX [Suspect]
     Active Substance: DARATUMUMAB
     Dosage: WEEKLY PUT ON HOLD DUE TO VIRAL URI
     Route: 042
     Dates: start: 20191216, end: 20210917
  6. NINLARO [Concomitant]
     Active Substance: IXAZOMIB CITRATE
     Indication: Product used for unknown indication
     Dosage: RELAPSE OR PROGRESSIVE DISEASE ?DAYS 1 8 AND 15 Q28 D
     Route: 048
     Dates: start: 20170206, end: 20181030
  7. NINLARO [Concomitant]
     Active Substance: IXAZOMIB CITRATE
     Dosage: DAYS 1,8  AND 15 Q28 D
     Route: 048
     Dates: start: 20181101, end: 20190106
  8. NINLARO [Concomitant]
     Active Substance: IXAZOMIB CITRATE
     Dosage: DAYS 1 8 AND 15 Q28D
     Route: 048
     Dates: start: 20190107, end: 20190225
  9. CARFILZOMIB [Concomitant]
     Active Substance: CARFILZOMIB
     Indication: Product used for unknown indication
     Dosage: 2 CONSECUTIVE DAYS PER WEEK FOR 3 WEEKS 1 WEEK OFF
     Route: 042
     Dates: start: 20220307
  10. CYTOXAN [Concomitant]
     Active Substance: CYCLOPHOSPHAMIDE
     Indication: Product used for unknown indication
     Dosage: DAYS 1,8  15 OF 28 DAYS
     Route: 042
     Dates: start: 20150203, end: 20150728
  11. CYTOXAN [Concomitant]
     Active Substance: CYCLOPHOSPHAMIDE
     Dosage: 2 CONSECUTIVE DAYS WEEKLY
     Route: 042
     Dates: start: 20220307
  12. VELCADE [Concomitant]
     Active Substance: BORTEZOMIB
     Dosage: DAYS 1 ,8, 15 OF 28 DAY CYCLE
     Route: 058
     Dates: start: 20150203, end: 20150728
  13. VELCADE [Concomitant]
     Active Substance: BORTEZOMIB
     Dosage: DAYS ,4,8,11 OF 21 DAY CYCLE
     Route: 058
     Dates: start: 20150818, end: 20151119
  14. VELCADE [Concomitant]
     Active Substance: BORTEZOMIB
     Dosage: DAYS 1 ,4,8,11 OF 21 DAYS
     Route: 058
     Dates: start: 20151207, end: 20151228
  15. ZOMETA [Concomitant]
     Active Substance: ZOLEDRONIC ACID
     Indication: Product used for unknown indication
     Dosage: EVERY 3 MONTHS
     Route: 042
     Dates: start: 20190225, end: 20210917
  16. ALKERAN [Concomitant]
     Active Substance: MELPHALAN
     Indication: Product used for unknown indication
     Dosage: OVER TWO DAYS
     Route: 042
     Dates: start: 20160127, end: 20160128
  17. DECADRON [Concomitant]
     Active Substance: DEXAMETHASONE
     Indication: Product used for unknown indication
     Dosage: DAYS 1 ,8 ,15 OF 28 DAY CYCLE
     Route: 042
     Dates: start: 20150203, end: 20150728
  18. DECADRON [Concomitant]
     Active Substance: DEXAMETHASONE
     Dosage: 2 TABS DAY 1 1 TAB DAY 2 THEN 3 TABS DAY 2 2 TA
     Route: 048
     Dates: start: 20220307
  19. DECADRON [Concomitant]
     Active Substance: DEXAMETHASONE
     Dosage: DAY 1 4 8 11 OF 21 DAY CYCLE
     Route: 048
     Dates: start: 20150818, end: 20151119
  20. DECADRON [Concomitant]
     Active Substance: DEXAMETHASONE
     Dosage: DAYS 1 4 8 11 OF 21 DAYS
     Route: 048
     Dates: start: 20151207, end: 20151228
  21. DECADRON [Concomitant]
     Active Substance: DEXAMETHASONE
     Dosage: RELAPSE/PROGRESSIVE  OD 2 DAYS 3 WEEKS ON 1 WEEK OFF
     Route: 048
     Dates: start: 20181101, end: 20190106
  22. DECADRON [Concomitant]
     Active Substance: DEXAMETHASONE
     Dosage: PI WANTS TO INDUCE A MORE RAPID AND DEEPER RESPONSE
     Route: 048
     Dates: start: 20190107, end: 20190225
  23. DECADRON [Concomitant]
     Active Substance: DEXAMETHASONE
     Dosage: PUT ON HOLD DUE TO VIRAL URI
     Route: 048
     Dates: start: 20190225, end: 20190917
  24. DECADRON [Concomitant]
     Active Substance: DEXAMETHASONE
     Route: 048
     Dates: start: 20191216, end: 20210917
  25. DARATUMUMAB [Concomitant]
     Active Substance: DARATUMUMAB
     Indication: Plasma cell myeloma
     Dosage: EVERY 28 DAYS
     Route: 042
     Dates: start: 20190225, end: 20190917

REACTIONS (11)
  - Sepsis [Unknown]
  - Atrial fibrillation [Unknown]
  - Musculoskeletal chest pain [Unknown]
  - Neutropenia [Unknown]
  - Thrombocytopenia [Unknown]
  - Anticoagulation drug level above therapeutic [Unknown]
  - Acute kidney injury [Unknown]
  - Viral upper respiratory tract infection [Unknown]
  - Toxicity to various agents [Unknown]
  - Dyspnoea [Unknown]
  - Blood thyroid stimulating hormone [Unknown]

NARRATIVE: CASE EVENT DATE: 20210913
